FAERS Safety Report 24708633 (Version 1)
Quarter: 2024Q4

REPORT INFORMATION
  Report Type: Spontaneous
  Country: US (occurrence: US)
  Receive Date: 20241207
  Receipt Date: 20241207
  Transmission Date: 20250115
  Serious: Yes (Hospitalization)
  Sender: CHIESI
  Company Number: US-CHIESI-2024CHF07874

PATIENT
  Age: 70 Year
  Sex: Male

DRUGS (3)
  1. TOBRAMYCIN [Suspect]
     Active Substance: TOBRAMYCIN\TOBRAMYCIN SULFATE
     Indication: Citrobacter infection
     Dosage: UNK
  2. TOBRAMYCIN [Suspect]
     Active Substance: TOBRAMYCIN\TOBRAMYCIN SULFATE
     Indication: Off label use
  3. VANCOMYCIN [Concomitant]
     Active Substance: VANCOMYCIN
     Indication: Citrobacter infection
     Dosage: UNK

REACTIONS (4)
  - Hyperkalaemia [Recovered/Resolved]
  - Acute kidney injury [Unknown]
  - Nephropathy toxic [Recovered/Resolved]
  - Off label use [Unknown]
